FAERS Safety Report 24224965 (Version 1)
Quarter: 2024Q3

REPORT INFORMATION
  Report Type: Spontaneous
  Country: US (occurrence: US)
  Receive Date: 20240820
  Receipt Date: 20240820
  Transmission Date: 20241017
  Serious: Yes (Hospitalization, Other)
  Sender: Steriscience PTE
  Company Number: US-STERISCIENCE B.V.-2024-ST-001202

PATIENT
  Age: 36 Year
  Sex: Male

DRUGS (4)
  1. METOPROLOL [Suspect]
     Active Substance: METOPROLOL
     Indication: Tachycardia
     Dosage: UNK
     Route: 065
  2. METHIMAZOLE [Suspect]
     Active Substance: METHIMAZOLE
     Indication: Thyrotoxic crisis
     Dosage: UNK
     Route: 065
  3. PREDNISONE [Suspect]
     Active Substance: PREDNISONE
     Indication: Thyrotoxic crisis
     Dosage: UNK
     Route: 065
  4. AMIODARONE [Suspect]
     Active Substance: AMIODARONE
     Indication: Tachycardia
     Dosage: UNK
     Route: 065

REACTIONS (5)
  - Acute kidney injury [Unknown]
  - Tachycardia [Unknown]
  - Intestinal ischaemia [Unknown]
  - Ischaemic hepatitis [Unknown]
  - Drug ineffective for unapproved indication [Unknown]
